FAERS Safety Report 8973926 (Version 2)
Quarter: 2012Q4

REPORT INFORMATION
  Report Type: 
  Country: TW (occurrence: TW)
  Receive Date: 20121218
  Receipt Date: 20121220
  Transmission Date: 20130627
  Serious: Yes (Death, Hospitalization)
  Sender: FDA-Public Use
  Company Number: PHHY2012TW116305

PATIENT
  Age: 76 Year
  Sex: Male

DRUGS (6)
  1. ISONIAZID [Suspect]
     Indication: PERITONEAL TUBERCULOSIS
     Dosage: 300 mg, per day
  2. RIFAMPICIN [Suspect]
     Indication: PERITONEAL TUBERCULOSIS
     Dosage: 600 mg, per day
  3. ETHAMBUTOL [Suspect]
     Indication: PERITONEAL TUBERCULOSIS
     Dosage: 800 mg, every other day
  4. AMLODIPINE [Concomitant]
  5. COLCHICINE [Concomitant]
  6. EPOETIN BETA [Concomitant]

REACTIONS (5)
  - Haemorrhage intracranial [Fatal]
  - Paradoxical drug reaction [Recovered/Resolved]
  - Peritoneal tuberculosis [Recovered/Resolved]
  - Decreased appetite [Recovered/Resolved]
  - Abdominal pain [Recovered/Resolved]
